FAERS Safety Report 5356211-4 (Version None)
Quarter: 2007Q2

REPORT INFORMATION
  Report Type: 
  Country: None (occurrence: None)
  Receive Date: 20070613
  Receipt Date: 20070417
  Transmission Date: 20071010
  Serious: Yes (Other)
  Sender: FDA-Public Use
  Company Number: US-PURDUE-USA_2007_0027695

PATIENT
  Sex: Male
  Weight: 104 kg

DRUGS (4)
  1. OXYCONTIN [Suspect]
     Indication: MULTIPLE INJURIES
     Dosage: UNK, BID
     Dates: start: 20000602
  2. METHOCARBAMOL [Concomitant]
     Dosage: 750 MG, BID
  3. HYDROCODONE BITARTRATE + ACETAMINOPHEN [Concomitant]
     Dosage: UNK, TID
  4. RELAFEN [Concomitant]
     Dosage: 750 GRAIN, BID

REACTIONS (11)
  - ACTIVITIES OF DAILY LIVING IMPAIRED [None]
  - AMNESIA [None]
  - DEPRESSION [None]
  - DISTURBANCE IN ATTENTION [None]
  - DRUG ABUSER [None]
  - FALL [None]
  - INTENTIONAL DRUG MISUSE [None]
  - LOSS OF CONSCIOUSNESS [None]
  - MENTAL IMPAIRMENT [None]
  - MULTIPLE INJURIES [None]
  - SUDDEN ONSET OF SLEEP [None]
